FAERS Safety Report 9284602 (Version 1)
Quarter: 2013Q2

REPORT INFORMATION
  Report Type: Spontaneous
  Country: US (occurrence: US)
  Receive Date: 20130513
  Receipt Date: 20130513
  Transmission Date: 20140414
  Serious: Yes (Hospitalization)
  Sender: FDA-Public Use
  Company Number: US-B.I. PHARMACEUTICALS,INC./RIDGEFIELD-2013-BI-12367BP

PATIENT
  Age: 77 Year
  Sex: Female
  Weight: 41 kg

DRUGS (2)
  1. COMBIVENT [Suspect]
     Indication: CHRONIC OBSTRUCTIVE PULMONARY DISEASE
     Dosage: STRENGTH: 18 MCG / 103 MCG; DAILY DOSE: 36 MCG / 206 MCG
     Route: 055
     Dates: start: 2009, end: 20130327
  2. ALBUTEROL [Concomitant]
     Indication: CHRONIC OBSTRUCTIVE PULMONARY DISEASE
     Dosage: 3 MG
     Route: 055
     Dates: start: 2009

REACTIONS (2)
  - Lung consolidation [Recovered/Resolved]
  - Drug administration error [Unknown]
